FAERS Safety Report 6249124-7 (Version None)
Quarter: 2009Q2

REPORT INFORMATION
  Report Type: 
  Country: None (occurrence: None)
  Receive Date: 20090624
  Receipt Date: 20090610
  Transmission Date: 20091009
  Serious: Yes (Hospitalization)
  Sender: FDA-Public Use
  Company Number: DK-1169909

PATIENT
  Age: 80 Year
  Sex: Female

DRUGS (1)
  1. AZOPT [Suspect]
     Dosage: OPHTHALMIC
     Route: 047
     Dates: start: 20071001

REACTIONS (1)
  - HEART RATE DECREASED [None]
